FAERS Safety Report 19001807 (Version 1)
Quarter: 2021Q1

REPORT INFORMATION
  Report Type: Report from Study
  Country: CO (occurrence: CO)
  Receive Date: 20210312
  Receipt Date: 20210312
  Transmission Date: 20210420
  Serious: Yes (Hospitalization)
  Sender: FDA-Public Use
  Company Number: PHHY2016CO169458

PATIENT
  Age: 22 Year
  Sex: Male
  Weight: 80 kg

DRUGS (7)
  1. GLIVEC [Suspect]
     Active Substance: IMATINIB MESYLATE
     Dosage: 100 MG, QD
     Route: 048
     Dates: start: 201607, end: 201611
  2. GLIVEC [Suspect]
     Active Substance: IMATINIB MESYLATE
     Indication: CHRONIC EOSINOPHILIC LEUKAEMIA
     Dosage: 400 MG, QD
     Route: 048
     Dates: start: 20160429, end: 20160613
  3. ASPIRIN. [Concomitant]
     Active Substance: ASPIRIN
     Indication: PRODUCT USED FOR UNKNOWN INDICATION
     Dosage: UNK
     Route: 065
  4. METOPROLOL. [Concomitant]
     Active Substance: METOPROLOL
     Indication: CARDIAC DISORDER
     Dosage: (1 TABLET IN THE MORNING, AND HALF AT NIGHT)
     Route: 065
     Dates: start: 201604
  5. IMATINIB. [Suspect]
     Active Substance: IMATINIB MESYLATE
     Indication: PRODUCT USED FOR UNKNOWN INDICATION
     Dosage: UNK
     Route: 065
  6. WARFARIN [Concomitant]
     Active Substance: WARFARIN
     Indication: THROMBOSIS
     Dosage: 5 MG, UNK (2 TABLETS ONE DAY, 1? THE NEXT DAY)
     Route: 048
     Dates: start: 201608
  7. PROCORALAN (IVABRADINE) [Concomitant]
     Active Substance: IVABRADINE
     Indication: PRODUCT USED FOR UNKNOWN INDICATION
     Dosage: UNK
     Route: 065

REACTIONS (11)
  - Carditis [Unknown]
  - Nausea [Unknown]
  - Pericardial effusion [Unknown]
  - Asthenia [Unknown]
  - Cardiac disorder [Unknown]
  - Malaise [Unknown]
  - Pleural effusion [Recovered/Resolved]
  - Peripheral swelling [Unknown]
  - Cardiac failure [Unknown]
  - Dizziness [Unknown]
  - Vomiting [Unknown]

NARRATIVE: CASE EVENT DATE: 201606
